FAERS Safety Report 7548791-5 (Version None)
Quarter: 2011Q2

REPORT INFORMATION
  Report Type: 
  Country: None (occurrence: None)
  Receive Date: 20110615
  Receipt Date: 20110610
  Transmission Date: 20111010
  Serious: Yes (Other)
  Sender: FDA-Public Use
  Company Number: NZ-PFIZER INC-2011127758

PATIENT
  Sex: Female

DRUGS (3)
  1. LIPITOR [Suspect]
     Dosage: 10 MG, UNK
     Dates: end: 20101201
  2. LIPITOR [Suspect]
     Dosage: 20 MG, UNK
     Dates: start: 20101201, end: 20110301
  3. LIPITOR [Suspect]
     Dosage: 40 MG, UNK
     Dates: start: 20110301, end: 20110301

REACTIONS (4)
  - TONGUE DISORDER [None]
  - DRY MOUTH [None]
  - ERYTHEMA [None]
  - SWELLING FACE [None]
